FAERS Safety Report 7893425-3 (Version None)
Quarter: 2011Q4

REPORT INFORMATION
  Report Type: 
  Country: None (occurrence: None)
  Receive Date: 20111104
  Receipt Date: 20111020
  Transmission Date: 20120403
  Serious: Yes (Hospitalization)
  Sender: FDA-Public Use
  Company Number: US-ROCHE-1006278

PATIENT
  Age: 79 Year
  Sex: Male

DRUGS (2)
  1. TENORMIN [Concomitant]
     Indication: HYPERTENSION
  2. KLONOPIN [Suspect]
     Indication: PANIC ATTACK
     Route: 048

REACTIONS (2)
  - COLON OPERATION [None]
  - FEELING ABNORMAL [None]
